FAERS Safety Report 6521833-1 (Version None)
Quarter: 2009Q4

REPORT INFORMATION
  Report Type: 
  Country: None (occurrence: None)
  Receive Date: 20091214
  Receipt Date: 20091214
  Transmission Date: 20100525
  Serious: Yes (Other)
  Sender: FDA-Public Use
  Company Number: 646338

PATIENT
  Age: 52 Year
  Sex: Female
  Weight: 96.2 kg

DRUGS (10)
  1. PEGASYS [Suspect]
     Indication: HEPATITIS C
     Dosage: 180 UG 1 PER WEEK SUBCUTANEOUS
     Route: 058
     Dates: start: 20090728
  2. RIBAVIRIN [Suspect]
     Indication: HEPATITIS C
     Dosage: 400 MG 2 PER 1 DAY ORAL
     Route: 048
     Dates: start: 20090728
  3. CIPRO [Concomitant]
  4. OMEPRAZOLE [Concomitant]
  5. GLUCOSAMINE (GLUCOSAMINE) [Concomitant]
  6. TRAMADOL HCL [Concomitant]
  7. ROBAXIN [Concomitant]
  8. TYLENOL [Concomitant]
  9. EXCEDRIN (*ASPIRIN/CAFFEIN/PARACETAMOL) [Concomitant]
  10. SINGULAIR [Concomitant]

REACTIONS (11)
  - ABDOMINAL PAIN [None]
  - ANAEMIA [None]
  - ARTHRALGIA [None]
  - DIARRHOEA [None]
  - EYE PAIN [None]
  - FATIGUE [None]
  - HEADACHE [None]
  - PYREXIA [None]
  - RASH PRURITIC [None]
  - SINUSITIS [None]
  - UPPER RESPIRATORY TRACT INFECTION [None]
